FAERS Safety Report 24542908 (Version 2)
Quarter: 2024Q4

REPORT INFORMATION
  Report Type: Spontaneous
  Country: PT (occurrence: PT)
  Receive Date: 20241024
  Receipt Date: 20241108
  Transmission Date: 20250114
  Serious: Yes (Other)
  Sender: TEVA
  Company Number: PT-TEVA-VS-3254539

PATIENT
  Age: 38 Year
  Sex: Male

DRUGS (2)
  1. OLANZAPINE [Suspect]
     Active Substance: OLANZAPINE
     Indication: Delusion of reference
     Dosage: BEFORE BEDTIME
     Route: 065
  2. LORAZEPAM [Suspect]
     Active Substance: LORAZEPAM
     Indication: Delusion of reference
     Dosage: BEFORE BEDTIME
     Route: 065

REACTIONS (2)
  - Delusion of reference [Recovering/Resolving]
  - Rebound effect [Unknown]
